FAERS Safety Report 4464220-2 (Version None)
Quarter: 2004Q4

REPORT INFORMATION
  Report Type: 
  Country: None (occurrence: None)
  Receive Date: 20041001
  Receipt Date: 20040921
  Transmission Date: 20050328
  Serious: Yes (Other)
  Sender: FDA-Public Use
  Company Number: GB-GLAXOSMITHKLINE-B0345916A

PATIENT
  Sex: Female

DRUGS (1)
  1. VENTOLIN [Suspect]
     Route: 055
     Dates: start: 20040101

REACTIONS (3)
  - ANGINA PECTORIS [None]
  - DYSGEUSIA [None]
  - LOWER RESPIRATORY TRACT INFECTION [None]
